FAERS Safety Report 8686311 (Version 2)
Quarter: 2015Q4

REPORT INFORMATION
  Report Type: Spontaneous
  Country: US (occurrence: US)
  Receive Date: 20120726
  Receipt Date: 20151217
  Transmission Date: 20160305
  Serious: Yes (Other)
  Sender: FDA-Public Use
  Company Number: US-ASTRAZENECA-2011SE60321

PATIENT
  Age: 22728 Day
  Sex: Male

DRUGS (2)
  1. SEROQUEL XR [Suspect]
     Active Substance: QUETIAPINE FUMARATE
     Route: 048
  2. SEROQUEL XR [Suspect]
     Active Substance: QUETIAPINE FUMARATE
     Route: 048

REACTIONS (5)
  - Clavicle fracture [Unknown]
  - Pneumothorax [Unknown]
  - Bipolar disorder [Unknown]
  - Road traffic accident [Unknown]
  - Chest pain [Unknown]

NARRATIVE: CASE EVENT DATE: 201507
